FAERS Safety Report 5369510-7 (Version None)
Quarter: 2007Q2

REPORT INFORMATION
  Report Type: 
  Country: None (occurrence: None)
  Receive Date: 20070625
  Receipt Date: 20070620
  Transmission Date: 20071010
  Serious: Yes (Other)
  Sender: FDA-Public Use
  Company Number: A0658954A

PATIENT
  Sex: Female

DRUGS (2)
  1. AVANDIA [Suspect]
     Route: 065
  2. NO CONCURRENT MEDICATION [Concomitant]

REACTIONS (3)
  - DISABILITY [None]
  - MOBILITY DECREASED [None]
  - MYOCARDIAL INFARCTION [None]
